FAERS Safety Report 9537960 (Version 1)
Quarter: 2013Q3

REPORT INFORMATION
  Report Type: Spontaneous
  Country: HU (occurrence: HU)
  Receive Date: 20130919
  Receipt Date: 20130919
  Transmission Date: 20140515
  Serious: Yes (Death)
  Sender: FDA-Public Use
  Company Number: HU-ACTAVIS-2013-16210

PATIENT
  Age: 57 Year
  Sex: Male

DRUGS (3)
  1. FLUDARABINE (UNKNOWN) [Suspect]
     Indication: CHLOROMA
     Dosage: UNK
     Route: 065
  2. CYTARABINE [Suspect]
     Indication: CHLOROMA
     Dosage: UNK
     Route: 065
  3. IDARUBICIN [Suspect]
     Indication: CHLOROMA
     Dosage: UNK
     Route: 065

REACTIONS (3)
  - Sepsis [Fatal]
  - Pneumonia [Fatal]
  - Intracranial pressure increased [Fatal]
